FAERS Safety Report 12084967 (Version 1)
Quarter: 2016Q1

REPORT INFORMATION
  Report Type: Spontaneous
  Country: US (occurrence: US)
  Receive Date: 20160217
  Receipt Date: 20160217
  Transmission Date: 20160526
  Serious: No
  Sender: FDA-Public Use
  Company Number: US-PERRIGO-15US013675

PATIENT
  Age: 69 Year
  Sex: Female

DRUGS (2)
  1. TRETINOIN. [Suspect]
     Active Substance: TRETINOIN
     Indication: PRODUCT USE ISSUE
     Dosage: UNK, EVERY OTHER NIGHT
     Route: 061
     Dates: start: 2013, end: 201510
  2. TRETINOIN. [Suspect]
     Active Substance: TRETINOIN
     Dosage: UNK, EVERY OTHER NIGHT
     Route: 061
     Dates: start: 201510

REACTIONS (4)
  - Product formulation issue [Unknown]
  - Application site exfoliation [Recovered/Resolved]
  - Application site erythema [Recovered/Resolved]
  - Drug ineffective for unapproved indication [Unknown]

NARRATIVE: CASE EVENT DATE: 201510
